FAERS Safety Report 20923963 (Version 1)
Quarter: 2022Q2

REPORT INFORMATION
  Report Type: Spontaneous
  Country: US (occurrence: None)
  Receive Date: 20220606
  Receipt Date: 20220606
  Transmission Date: 20220721
  Serious: No
  Sender: FDA-Public Use
  Company Number: None

PATIENT
  Age: 67 Year
  Sex: Female
  Weight: 85.5 kg

DRUGS (1)
  1. PAXLOVID [Suspect]
     Active Substance: NIRMATRELVIR\RITONAVIR
     Indication: COVID-19
     Dosage: FREQUENCY : TWICE A DAY;?
     Route: 048
     Dates: start: 20220523, end: 20220526

REACTIONS (15)
  - Nausea [None]
  - Feeling abnormal [None]
  - Burning sensation [None]
  - Oral disorder [None]
  - Oropharyngeal pain [None]
  - Oral mucosal blistering [None]
  - Oropharyngeal blistering [None]
  - Throat tightness [None]
  - Dysgeusia [None]
  - Discomfort [None]
  - Musculoskeletal discomfort [None]
  - Stomatitis [None]
  - Anal ulcer [None]
  - Gingival bleeding [None]
  - COVID-19 [None]

NARRATIVE: CASE EVENT DATE: 20220524
